FAERS Safety Report 23242704 (Version 5)
Quarter: 2024Q3

REPORT INFORMATION
  Report Type: Spontaneous
  Country: CA (occurrence: CA)
  Receive Date: 20231129
  Receipt Date: 20240917
  Transmission Date: 20241016
  Serious: Yes (Death, Life-Threatening, Hospitalization, Disabling, Other)
  Sender: BAUSCH AND LOMB
  Company Number: CA-BAUSCH-BL-2023-017463

PATIENT
  Age: 48 Year
  Sex: Female
  Weight: 68 kg

DRUGS (290)
  1. DICLOFENAC SODIUM [Suspect]
     Active Substance: DICLOFENAC\DICLOFENAC SODIUM
     Indication: Product used for unknown indication
     Route: 065
  2. DICLOFENAC SODIUM [Suspect]
     Active Substance: DICLOFENAC\DICLOFENAC SODIUM
     Indication: Product used for unknown indication
     Route: 065
  3. DICLOFENAC POTASSIUM [Suspect]
     Active Substance: DICLOFENAC POTASSIUM
     Indication: Product used for unknown indication
     Route: 058
  4. HYDROCORTISONE [Suspect]
     Active Substance: HYDROCORTISONE\HYDROCORTISONE ACETATE
     Indication: Product used for unknown indication
     Route: 065
  5. MINOCYCLINE HYDROCHLORIDE [Suspect]
     Active Substance: MINOCYCLINE HYDROCHLORIDE
     Indication: Product used for unknown indication
     Route: 065
  6. MINOCYCLINE HYDROCHLORIDE [Suspect]
     Active Substance: MINOCYCLINE HYDROCHLORIDE
     Dosage: MINOCYCLINE
     Route: 065
  7. TOPICORT [Suspect]
     Active Substance: DESOXIMETASONE
     Indication: Rheumatoid arthritis
     Route: 065
  8. CORTISONE ACETATE [Suspect]
     Active Substance: CORTISONE ACETATE
     Indication: Rheumatoid arthritis
     Route: 048
  9. CORTISONE ACETATE [Suspect]
     Active Substance: CORTISONE ACETATE
     Route: 065
  10. CORTISONE ACETATE [Suspect]
     Active Substance: CORTISONE ACETATE
     Route: 048
  11. DESOXIMETASONE [Suspect]
     Active Substance: DESOXIMETASONE
     Indication: Rheumatoid arthritis
     Route: 003
  12. DESOXIMETASONE [Suspect]
     Active Substance: DESOXIMETASONE
     Route: 065
  13. DESOXIMETASONE [Suspect]
     Active Substance: DESOXIMETASONE
     Indication: Rheumatoid arthritis
     Route: 048
  14. DESOXIMETASONE [Suspect]
     Active Substance: DESOXIMETASONE
     Route: 048
  15. DESOXIMETASONE [Suspect]
     Active Substance: DESOXIMETASONE
     Route: 067
  16. DESOXIMETASONE [Suspect]
     Active Substance: DESOXIMETASONE
     Route: 058
  17. DESOXIMETASONE [Suspect]
     Active Substance: DESOXIMETASONE
     Route: 003
  18. DESOXIMETASONE [Suspect]
     Active Substance: DESOXIMETASONE
     Route: 061
  19. DESOXIMETASONE [Suspect]
     Active Substance: DESOXIMETASONE
     Route: 064
  20. ACTEMRA [Suspect]
     Active Substance: TOCILIZUMAB
     Indication: Rheumatoid arthritis
     Route: 042
  21. ACTEMRA [Suspect]
     Active Substance: TOCILIZUMAB
     Route: 065
  22. ACTEMRA [Suspect]
     Active Substance: TOCILIZUMAB
     Route: 042
  23. ACTEMRA [Suspect]
     Active Substance: TOCILIZUMAB
     Route: 042
  24. ACTEMRA [Suspect]
     Active Substance: TOCILIZUMAB
     Route: 048
  25. ACTEMRA [Suspect]
     Active Substance: TOCILIZUMAB
     Dosage: INTRACARDIAC
     Route: 016
  26. ACTEMRA [Suspect]
     Active Substance: TOCILIZUMAB
     Route: 042
  27. ACTEMRA [Suspect]
     Active Substance: TOCILIZUMAB
     Route: 065
  28. ACTEMRA [Suspect]
     Active Substance: TOCILIZUMAB
     Route: 065
  29. ACTEMRA [Suspect]
     Active Substance: TOCILIZUMAB
     Route: 048
  30. ACTEMRA [Suspect]
     Active Substance: TOCILIZUMAB
     Route: 016
  31. ACTEMRA [Suspect]
     Active Substance: TOCILIZUMAB
     Route: 064
  32. ACTEMRA [Suspect]
     Active Substance: TOCILIZUMAB
     Route: 058
  33. ACTEMRA [Suspect]
     Active Substance: TOCILIZUMAB
     Route: 061
  34. ACTEMRA [Suspect]
     Active Substance: TOCILIZUMAB
     Route: 042
  35. ADALIMUMAB [Suspect]
     Active Substance: ADALIMUMAB
     Indication: Rheumatoid arthritis
     Dosage: SOLUTION SUBCUTANEOUS
     Route: 064
  36. ADALIMUMAB [Suspect]
     Active Substance: ADALIMUMAB
     Dosage: SOLUTION SUBCUTANEOUS
     Route: 058
  37. ADALIMUMAB [Suspect]
     Active Substance: ADALIMUMAB
     Dosage: SOLUTION SUBCUTANEOUS
     Route: 058
  38. ALENDRONIC ACID [Suspect]
     Active Substance: ALENDRONIC ACID
     Indication: Rheumatoid arthritis
     Dosage: ALENDRONATE SODIUM, INTRACARDIAC
     Route: 016
  39. ALENDRONIC ACID [Suspect]
     Active Substance: ALENDRONIC ACID
     Dosage: ALENDRONATE SODIUM
     Route: 048
  40. ALENDRONIC ACID [Suspect]
     Active Substance: ALENDRONIC ACID
     Route: 048
  41. ALENDRONIC ACID [Suspect]
     Active Substance: ALENDRONIC ACID
     Dosage: INTRACARDIAC
     Route: 016
  42. ALENDRONIC ACID [Suspect]
     Active Substance: ALENDRONIC ACID
     Dosage: ALENDRONATE SODIUM
     Route: 048
  43. ALENDRONIC ACID [Suspect]
     Active Substance: ALENDRONIC ACID
     Dosage: ALENDRONATE SODIUM
     Route: 058
  44. ALENDRONIC ACID [Suspect]
     Active Substance: ALENDRONIC ACID
     Dosage: ALENDRONATE SODIUM
     Route: 064
  45. PREDNISONE [Suspect]
     Active Substance: PREDNISONE
     Indication: Rheumatoid arthritis
     Route: 048
  46. PREDNISONE [Suspect]
     Active Substance: PREDNISONE
     Route: 048
  47. PREDNISONE [Suspect]
     Active Substance: PREDNISONE
     Route: 048
  48. PREDNISONE [Suspect]
     Active Substance: PREDNISONE
     Route: 064
  49. PREDNISONE [Suspect]
     Active Substance: PREDNISONE
     Route: 048
  50. PREDNISONE [Suspect]
     Active Substance: PREDNISONE
     Route: 048
  51. ARAVA [Suspect]
     Active Substance: LEFLUNOMIDE
     Indication: Rheumatoid arthritis
     Route: 065
  52. ARAVA [Suspect]
     Active Substance: LEFLUNOMIDE
     Route: 005
  53. ARAVA [Suspect]
     Active Substance: LEFLUNOMIDE
     Route: 048
  54. ARAVA [Suspect]
     Active Substance: LEFLUNOMIDE
     Route: 048
  55. ARAVA [Suspect]
     Active Substance: LEFLUNOMIDE
     Route: 048
  56. ARAVA [Suspect]
     Active Substance: LEFLUNOMIDE
     Route: 048
  57. AZATHIOPRINE [Suspect]
     Active Substance: AZATHIOPRINE
     Indication: Product used for unknown indication
     Route: 065
  58. CALCIUM CARBONATE [Suspect]
     Active Substance: CALCIUM CARBONATE
     Indication: Product used for unknown indication
     Route: 065
  59. CALCIUM CARBONATE [Suspect]
     Active Substance: CALCIUM CARBONATE
     Dosage: CALCIUM GLUBIONATE, INTRACARDIAC
     Route: 016
  60. CALCIUM CARBONATE [Suspect]
     Active Substance: CALCIUM CARBONATE
     Dosage: CALCIUM GLUBIONATE, INTRACARDIAC
     Route: 016
  61. CERTOLIZUMAB PEGOL [Suspect]
     Active Substance: CERTOLIZUMAB PEGOL
     Indication: Rheumatoid arthritis
     Route: 058
  62. CERTOLIZUMAB PEGOL [Suspect]
     Active Substance: CERTOLIZUMAB PEGOL
     Route: 065
  63. CERTOLIZUMAB PEGOL [Suspect]
     Active Substance: CERTOLIZUMAB PEGOL
     Route: 065
  64. CERTOLIZUMAB PEGOL [Suspect]
     Active Substance: CERTOLIZUMAB PEGOL
     Route: 058
  65. CERTOLIZUMAB PEGOL [Suspect]
     Active Substance: CERTOLIZUMAB PEGOL
     Route: 064
  66. CETIRIZINE HYDROCHLORIDE [Suspect]
     Active Substance: CETIRIZINE HYDROCHLORIDE
     Indication: Rheumatoid arthritis
     Route: 048
  67. CETIRIZINE HYDROCHLORIDE [Suspect]
     Active Substance: CETIRIZINE HYDROCHLORIDE
     Indication: Off label use
     Route: 048
  68. CETIRIZINE HYDROCHLORIDE [Suspect]
     Active Substance: CETIRIZINE HYDROCHLORIDE
     Route: 064
  69. CETIRIZINE HYDROCHLORIDE [Suspect]
     Active Substance: CETIRIZINE HYDROCHLORIDE
     Route: 065
  70. CETIRIZINE HYDROCHLORIDE [Suspect]
     Active Substance: CETIRIZINE HYDROCHLORIDE
     Route: 048
  71. CETIRIZINE HYDROCHLORIDE [Suspect]
     Active Substance: CETIRIZINE HYDROCHLORIDE
     Route: 048
  72. CETIRIZINE HYDROCHLORIDE [Suspect]
     Active Substance: CETIRIZINE HYDROCHLORIDE
     Dosage: CETIRIZINE
     Route: 048
  73. CETIRIZINE HYDROCHLORIDE [Suspect]
     Active Substance: CETIRIZINE HYDROCHLORIDE
     Dosage: CETIRIZINE
     Route: 048
  74. CETIRIZINE HYDROCHLORIDE [Suspect]
     Active Substance: CETIRIZINE HYDROCHLORIDE
     Dosage: CETIRIZINE
     Route: 064
  75. CETIRIZINE HYDROCHLORIDE [Suspect]
     Active Substance: CETIRIZINE HYDROCHLORIDE
     Dosage: CETIRIZINE?HYDROCHLORIDE
     Route: 067
  76. CETIRIZINE HYDROCHLORIDE [Suspect]
     Active Substance: CETIRIZINE HYDROCHLORIDE
     Dosage: CETIRIZINE?HYDROCHLORIDE
     Route: 065
  77. CETIRIZINE HYDROCHLORIDE\PSEUDOEPHEDRINE HYDROCHLORIDE [Suspect]
     Active Substance: CETIRIZINE HYDROCHLORIDE\PSEUDOEPHEDRINE HYDROCHLORIDE
     Indication: Rheumatoid arthritis
     Route: 065
  78. CETIRIZINE HYDROCHLORIDE\PSEUDOEPHEDRINE HYDROCHLORIDE [Suspect]
     Active Substance: CETIRIZINE HYDROCHLORIDE\PSEUDOEPHEDRINE HYDROCHLORIDE
     Route: 048
  79. CETIRIZINE HYDROCHLORIDE\PSEUDOEPHEDRINE HYDROCHLORIDE [Suspect]
     Active Substance: CETIRIZINE HYDROCHLORIDE\PSEUDOEPHEDRINE HYDROCHLORIDE
     Route: 067
  80. CETIRIZINE HYDROCHLORIDE\PSEUDOEPHEDRINE HYDROCHLORIDE [Suspect]
     Active Substance: CETIRIZINE HYDROCHLORIDE\PSEUDOEPHEDRINE HYDROCHLORIDE
     Route: 065
  81. CHLORHEXIDINE ACETATE [Suspect]
     Active Substance: CHLORHEXIDINE ACETATE
     Indication: Product used for unknown indication
     Route: 061
  82. CHLORHEXIDINE ACETATE [Suspect]
     Active Substance: CHLORHEXIDINE ACETATE
     Dosage: CHLORHEXIDINE
     Route: 061
  83. CHLORHEXIDINE ACETATE [Suspect]
     Active Substance: CHLORHEXIDINE ACETATE
     Dosage: CHLORHEXIDINE
     Route: 005
  84. CHLORHEXIDINE ACETATE [Suspect]
     Active Substance: CHLORHEXIDINE ACETATE
     Route: 065
  85. CHLORHEXIDINE GLUCONATE\ISOPROPYL ALCOHOL [Suspect]
     Active Substance: CHLORHEXIDINE GLUCONATE\ISOPROPYL ALCOHOL
     Indication: Product used for unknown indication
     Route: 061
  86. CHLORHEXIDINE GLUCONATE\ISOPROPYL ALCOHOL [Suspect]
     Active Substance: CHLORHEXIDINE GLUCONATE\ISOPROPYL ALCOHOL
     Route: 065
  87. CIMZIA [Suspect]
     Active Substance: CERTOLIZUMAB PEGOL
     Indication: Rheumatoid arthritis
     Route: 058
  88. CIMZIA [Suspect]
     Active Substance: CERTOLIZUMAB PEGOL
     Route: 064
  89. CIMZIA [Suspect]
     Active Substance: CERTOLIZUMAB PEGOL
     Route: 065
  90. CIMZIA [Suspect]
     Active Substance: CERTOLIZUMAB PEGOL
     Route: 058
  91. CORTISONE ACETATE [Suspect]
     Active Substance: CORTISONE ACETATE
     Indication: Rheumatoid arthritis
     Route: 048
  92. CORTISONE ACETATE [Suspect]
     Active Substance: CORTISONE ACETATE
     Route: 061
  93. CORTISONE ACETATE [Suspect]
     Active Substance: CORTISONE ACETATE
     Route: 048
  94. CORTISONE ACETATE [Suspect]
     Active Substance: CORTISONE ACETATE
     Route: 061
  95. CORTISONE ACETATE [Suspect]
     Active Substance: CORTISONE ACETATE
     Route: 064
  96. CORTISONE ACETATE [Suspect]
     Active Substance: CORTISONE ACETATE
     Dosage: TABLET
     Route: 061
  97. CORTISONE ACETATE [Suspect]
     Active Substance: CORTISONE ACETATE
     Route: 065
  98. CORTISONE ACETATE [Suspect]
     Active Substance: CORTISONE ACETATE
     Route: 065
  99. CORTISONE ACETATE [Suspect]
     Active Substance: CORTISONE ACETATE
     Route: 061
  100. CORTISONE ACETATE [Suspect]
     Active Substance: CORTISONE ACETATE
     Route: 064
  101. COSENTYX [Suspect]
     Active Substance: SECUKINUMAB
     Indication: Rheumatoid arthritis
     Route: 005
  102. COSENTYX [Suspect]
     Active Substance: SECUKINUMAB
     Route: 065
  103. DIPHENHYDRAMINE HYDROCHLORIDE [Suspect]
     Active Substance: DIPHENHYDRAMINE HYDROCHLORIDE
     Indication: Product used for unknown indication
     Route: 065
  104. ENBREL [Suspect]
     Active Substance: ETANERCEPT
     Indication: Rheumatoid arthritis
     Route: 058
  105. ENBREL [Suspect]
     Active Substance: ETANERCEPT
     Route: 058
  106. ENBREL [Suspect]
     Active Substance: ETANERCEPT
     Route: 058
  107. ENBREL [Suspect]
     Active Substance: ETANERCEPT
     Route: 064
  108. ENBREL [Suspect]
     Active Substance: ETANERCEPT
     Route: 065
  109. ENBREL [Suspect]
     Active Substance: ETANERCEPT
     Route: 058
  110. ENBREL [Suspect]
     Active Substance: ETANERCEPT
     Route: 064
  111. ENBREL [Suspect]
     Active Substance: ETANERCEPT
     Route: 058
  112. ETANERCEPT [Suspect]
     Active Substance: ETANERCEPT
     Indication: Rheumatoid arthritis
     Route: 058
  113. ETANERCEPT [Suspect]
     Active Substance: ETANERCEPT
     Route: 058
  114. ETANERCEPT [Suspect]
     Active Substance: ETANERCEPT
     Route: 065
  115. FOLIC ACID [Suspect]
     Active Substance: FOLIC ACID
     Indication: Rheumatoid arthritis
     Route: 065
  116. FOLIC ACID [Suspect]
     Active Substance: FOLIC ACID
     Route: 048
  117. FOLIC ACID [Suspect]
     Active Substance: FOLIC ACID
     Route: 048
  118. FOLIC ACID [Suspect]
     Active Substance: FOLIC ACID
     Route: 048
  119. FOLIC ACID [Suspect]
     Active Substance: FOLIC ACID
     Route: 058
  120. FOLIC ACID [Suspect]
     Active Substance: FOLIC ACID
     Route: 065
  121. FOLIC ACID [Suspect]
     Active Substance: FOLIC ACID
     Route: 065
  122. FOLIC ACID [Suspect]
     Active Substance: FOLIC ACID
     Route: 065
  123. FOLIC ACID [Suspect]
     Active Substance: FOLIC ACID
     Route: 065
  124. FOLIC ACID [Suspect]
     Active Substance: FOLIC ACID
     Route: 065
  125. FOLIC ACID [Suspect]
     Active Substance: FOLIC ACID
     Route: 065
  126. FOLIC ACID [Suspect]
     Active Substance: FOLIC ACID
     Route: 065
  127. FOLIC ACID [Suspect]
     Active Substance: FOLIC ACID
     Route: 048
  128. FOLIC ACID [Suspect]
     Active Substance: FOLIC ACID
     Route: 058
  129. FOLIC ACID [Suspect]
     Active Substance: FOLIC ACID
     Route: 048
  130. FOSAMAX [Suspect]
     Active Substance: ALENDRONATE SODIUM
     Indication: Rheumatoid arthritis
     Route: 058
  131. FOSAMAX [Suspect]
     Active Substance: ALENDRONATE SODIUM
     Route: 048
  132. FOSAMAX [Suspect]
     Active Substance: ALENDRONATE SODIUM
     Dosage: INTRACARDIAC
     Route: 016
  133. FOSAMAX [Suspect]
     Active Substance: ALENDRONATE SODIUM
     Route: 016
  134. FOSAMAX [Suspect]
     Active Substance: ALENDRONATE SODIUM
     Route: 064
  135. FOSAMAX [Suspect]
     Active Substance: ALENDRONATE SODIUM
     Route: 065
  136. FOSAMAX [Suspect]
     Active Substance: ALENDRONATE SODIUM
     Route: 058
  137. FOSAMAX [Suspect]
     Active Substance: ALENDRONATE SODIUM
     Route: 016
  138. HUMIRA [Suspect]
     Active Substance: ADALIMUMAB
     Indication: Rheumatoid arthritis
     Dosage: SOLUTION SUBCUTANEOUS
     Route: 058
  139. HUMIRA [Suspect]
     Active Substance: ADALIMUMAB
     Indication: Psoriatic arthropathy
     Dosage: SOLUTION SUBCUTANEOUS
     Route: 058
  140. HUMIRA [Suspect]
     Active Substance: ADALIMUMAB
     Dosage: SOLUTION SUBCUTANEOUS
     Route: 058
  141. HUMIRA [Suspect]
     Active Substance: ADALIMUMAB
     Dosage: SOLUTION SUBCUTANEOUS
     Route: 058
  142. HUMIRA [Suspect]
     Active Substance: ADALIMUMAB
     Route: 058
  143. HUMIRA [Suspect]
     Active Substance: ADALIMUMAB
     Route: 064
  144. HUMIRA [Suspect]
     Active Substance: ADALIMUMAB
     Route: 058
  145. HUMIRA [Suspect]
     Active Substance: ADALIMUMAB
     Route: 058
  146. HUMIRA [Suspect]
     Active Substance: ADALIMUMAB
     Route: 058
  147. HUMIRA [Suspect]
     Active Substance: ADALIMUMAB
     Route: 058
  148. HUMIRA [Suspect]
     Active Substance: ADALIMUMAB
     Route: 065
  149. HUMIRA [Suspect]
     Active Substance: ADALIMUMAB
     Route: 064
  150. HYDROXYCHLOROQUINE [Suspect]
     Active Substance: HYDROXYCHLOROQUINE
     Indication: Rheumatoid arthritis
     Route: 048
  151. HYDROXYCHLOROQUINE [Suspect]
     Active Substance: HYDROXYCHLOROQUINE
     Route: 005
  152. HYDROXYCHLOROQUINE [Suspect]
     Active Substance: HYDROXYCHLOROQUINE
     Dosage: HYDROXYCHLOROQUINE SULFATE, TABLETS, USP
     Route: 065
  153. HYDROXYCHLOROQUINE [Suspect]
     Active Substance: HYDROXYCHLOROQUINE
     Dosage: HYDROXYCHLOROQUINE SULFATE, TABLETS, USP
     Route: 065
  154. HYDROXYCHLOROQUINE [Suspect]
     Active Substance: HYDROXYCHLOROQUINE
     Dosage: HYDROXYCHLOROQUINE SULFATE, TABLETS, USP
     Route: 058
  155. HYDROXYCHLOROQUINE [Suspect]
     Active Substance: HYDROXYCHLOROQUINE
     Dosage: HYDROXYCHLOROQUINE SULFATE, TABLETS, USP
     Route: 048
  156. HYDROXYCHLOROQUINE [Suspect]
     Active Substance: HYDROXYCHLOROQUINE
     Dosage: HYDROXYCHLOROQUINE SULFATE
     Route: 065
  157. HYDROXYCHLOROQUINE [Suspect]
     Active Substance: HYDROXYCHLOROQUINE
     Dosage: HYDROXYCHLOROQUINE SULFATE
     Route: 065
  158. HYDROXYCHLOROQUINE [Suspect]
     Active Substance: HYDROXYCHLOROQUINE
     Route: 048
  159. HYDROXYCHLOROQUINE [Suspect]
     Active Substance: HYDROXYCHLOROQUINE
     Route: 064
  160. HYDROXYCHLOROQUINE [Suspect]
     Active Substance: HYDROXYCHLOROQUINE
     Route: 048
  161. IBUPROFEN [Suspect]
     Active Substance: IBUPROFEN
     Indication: Product used for unknown indication
     Route: 065
  162. IBUPROFEN [Suspect]
     Active Substance: IBUPROFEN
     Dosage: CHILDREN^S IBUPROFEN SUSPENSION
     Route: 048
  163. KEVZARA [Suspect]
     Active Substance: SARILUMAB
     Indication: Rheumatoid arthritis
     Route: 065
  164. KEVZARA [Suspect]
     Active Substance: SARILUMAB
     Route: 064
  165. METHOTREXATE [Suspect]
     Active Substance: METHOTREXATE
     Indication: Rheumatoid arthritis
     Route: 048
  166. METHOTREXATE [Suspect]
     Active Substance: METHOTREXATE
     Route: 048
  167. METHOTREXATE [Suspect]
     Active Substance: METHOTREXATE
     Route: 013
  168. METHOTREXATE [Suspect]
     Active Substance: METHOTREXATE
     Route: 058
  169. METHOTREXATE [Suspect]
     Active Substance: METHOTREXATE
     Route: 064
  170. METHOTREXATE [Suspect]
     Active Substance: METHOTREXATE
     Route: 065
  171. METHOTREXATE [Suspect]
     Active Substance: METHOTREXATE
     Route: 042
  172. METHOTREXATE [Suspect]
     Active Substance: METHOTREXATE
     Route: 013
  173. METHOTREXATE [Suspect]
     Active Substance: METHOTREXATE
     Route: 048
  174. METHOTREXATE [Suspect]
     Active Substance: METHOTREXATE
     Route: 058
  175. METHOTREXATE [Suspect]
     Active Substance: METHOTREXATE
     Route: 064
  176. METHOTREXATE [Suspect]
     Active Substance: METHOTREXATE
     Route: 065
  177. METHOTREXATE [Suspect]
     Active Substance: METHOTREXATE
     Route: 048
  178. METHOTREXATE [Suspect]
     Active Substance: METHOTREXATE
     Route: 048
  179. METHOTREXATE [Suspect]
     Active Substance: METHOTREXATE
     Route: 058
  180. METHOTREXATE [Suspect]
     Active Substance: METHOTREXATE
     Route: 048
  181. METHOTREXATE [Suspect]
     Active Substance: METHOTREXATE
     Route: 064
  182. METHOTREXATE [Suspect]
     Active Substance: METHOTREXATE
     Route: 065
  183. METHOTREXATE [Suspect]
     Active Substance: METHOTREXATE
     Route: 013
  184. METHOTREXATE [Suspect]
     Active Substance: METHOTREXATE
     Route: 065
  185. METHOTREXATE [Suspect]
     Active Substance: METHOTREXATE
     Route: 058
  186. METHOTREXATE [Suspect]
     Active Substance: METHOTREXATE
     Route: 048
  187. METHOTREXATE [Suspect]
     Active Substance: METHOTREXATE
     Route: 048
  188. METHOTREXATE [Suspect]
     Active Substance: METHOTREXATE
     Route: 064
  189. METHOTREXATE [Suspect]
     Active Substance: METHOTREXATE
     Route: 048
  190. METHOTREXATE [Suspect]
     Active Substance: METHOTREXATE
     Route: 058
  191. MORPHINE [Suspect]
     Active Substance: MORPHINE
     Indication: Product used for unknown indication
     Route: 065
  192. NEOMYCIN [Suspect]
     Active Substance: NEOMYCIN
     Indication: Product used for unknown indication
     Route: 048
  193. ORENCIA [Suspect]
     Active Substance: ABATACEPT
     Indication: Rheumatoid arthritis
     Route: 058
  194. ORENCIA [Suspect]
     Active Substance: ABATACEPT
     Route: 042
  195. ORENCIA [Suspect]
     Active Substance: ABATACEPT
     Route: 058
  196. ORENCIA [Suspect]
     Active Substance: ABATACEPT
     Route: 064
  197. ORENCIA [Suspect]
     Active Substance: ABATACEPT
     Route: 058
  198. ORENCIA [Suspect]
     Active Substance: ABATACEPT
     Route: 048
  199. ORENCIA [Suspect]
     Active Substance: ABATACEPT
     Route: 058
  200. PANTOPRAZOLE [Suspect]
     Active Substance: PANTOPRAZOLE
     Indication: Dyspepsia
     Route: 048
  201. PANTOPRAZOLE [Suspect]
     Active Substance: PANTOPRAZOLE
     Dosage: PANTOPRAZOLE SODIUM
     Route: 048
  202. PERIOGARD [Suspect]
     Active Substance: CHLORHEXIDINE GLUCONATE
     Indication: Product used for unknown indication
     Route: 065
  203. PHTHALYLSULFATHIAZOLE [Suspect]
     Active Substance: PHTHALYLSULFATHIAZOLE
     Indication: Rheumatoid arthritis
     Dosage: INTRACARDIAC
     Route: 016
  204. PHTHALYLSULFATHIAZOLE [Suspect]
     Active Substance: PHTHALYLSULFATHIAZOLE
     Dosage: INTRACARDIAC
     Route: 016
  205. PHTHALYLSULFATHIAZOLE [Suspect]
     Active Substance: PHTHALYLSULFATHIAZOLE
     Route: 065
  206. PHTHALYLSULFATHIAZOLE [Suspect]
     Active Substance: PHTHALYLSULFATHIAZOLE
     Route: 048
  207. PHTHALYLSULFATHIAZOLE [Suspect]
     Active Substance: PHTHALYLSULFATHIAZOLE
     Dosage: INTRACARDIAC
     Route: 064
  208. PREDNISONE [Suspect]
     Active Substance: PREDNISONE
     Indication: Rheumatoid arthritis
     Route: 061
  209. PREDNISONE [Suspect]
     Active Substance: PREDNISONE
     Indication: Condition aggravated
     Route: 048
  210. PREDNISONE [Suspect]
     Active Substance: PREDNISONE
     Route: 048
  211. PREDNISONE [Suspect]
     Active Substance: PREDNISONE
     Route: 048
  212. PREDNISONE [Suspect]
     Active Substance: PREDNISONE
     Route: 048
  213. PREDNISONE [Suspect]
     Active Substance: PREDNISONE
     Route: 065
  214. PREDNISONE [Suspect]
     Active Substance: PREDNISONE
     Dosage: INTRACARDIAC
     Route: 016
  215. PREDNISONE [Suspect]
     Active Substance: PREDNISONE
     Route: 065
  216. PREDNISONE [Suspect]
     Active Substance: PREDNISONE
     Route: 048
  217. PREDNISONE [Suspect]
     Active Substance: PREDNISONE
     Route: 042
  218. PREDNISONE [Suspect]
     Active Substance: PREDNISONE
     Route: 065
  219. PREDNISONE [Suspect]
     Active Substance: PREDNISONE
     Dosage: METHYLPREDNISOLONE SODIUM SUCCINATE
     Route: 065
  220. PREDNISONE [Suspect]
     Active Substance: PREDNISONE
     Route: 065
  221. PREDNISONE [Suspect]
     Active Substance: PREDNISONE
     Route: 061
  222. PSEUDOEPHEDRINE HYDROCHLORIDE [Suspect]
     Active Substance: PSEUDOEPHEDRINE HYDROCHLORIDE
     Indication: Rheumatoid arthritis
     Route: 048
  223. PSEUDOEPHEDRINE HYDROCHLORIDE [Suspect]
     Active Substance: PSEUDOEPHEDRINE HYDROCHLORIDE
     Route: 064
  224. PSEUDOEPHEDRINE HYDROCHLORIDE [Suspect]
     Active Substance: PSEUDOEPHEDRINE HYDROCHLORIDE
     Route: 065
  225. PSEUDOEPHEDRINE HYDROCHLORIDE [Suspect]
     Active Substance: PSEUDOEPHEDRINE HYDROCHLORIDE
     Route: 065
  226. PSEUDOEPHEDRINE HYDROCHLORIDE [Suspect]
     Active Substance: PSEUDOEPHEDRINE HYDROCHLORIDE
     Route: 048
  227. PSEUDOEPHEDRINE HYDROCHLORIDE [Suspect]
     Active Substance: PSEUDOEPHEDRINE HYDROCHLORIDE
     Route: 064
  228. CETIRIZINE HYDROCHLORIDE [Suspect]
     Active Substance: CETIRIZINE HYDROCHLORIDE
     Indication: Rheumatoid arthritis
     Dosage: TABLET (EXTENDED- RELEASE)
     Route: 067
  229. CETIRIZINE HYDROCHLORIDE [Suspect]
     Active Substance: CETIRIZINE HYDROCHLORIDE
     Route: 048
  230. CETIRIZINE HYDROCHLORIDE [Suspect]
     Active Substance: CETIRIZINE HYDROCHLORIDE
     Route: 048
  231. CETIRIZINE HYDROCHLORIDE [Suspect]
     Active Substance: CETIRIZINE HYDROCHLORIDE
     Route: 065
  232. CETIRIZINE HYDROCHLORIDE [Suspect]
     Active Substance: CETIRIZINE HYDROCHLORIDE
     Route: 065
  233. CETIRIZINE HYDROCHLORIDE [Suspect]
     Active Substance: CETIRIZINE HYDROCHLORIDE
     Route: 065
  234. CETIRIZINE HYDROCHLORIDE [Suspect]
     Active Substance: CETIRIZINE HYDROCHLORIDE
     Dosage: REACTINE ALLERGY
     Route: 048
  235. CETIRIZINE HYDROCHLORIDE [Suspect]
     Active Substance: CETIRIZINE HYDROCHLORIDE
     Dosage: REACTINE ALLERGY
     Route: 048
  236. CETIRIZINE HYDROCHLORIDE [Suspect]
     Active Substance: CETIRIZINE HYDROCHLORIDE
     Dosage: REACTINE ALLERGY
     Route: 067
  237. CETIRIZINE HYDROCHLORIDE [Suspect]
     Active Substance: CETIRIZINE HYDROCHLORIDE
     Dosage: REACTINE COMPLETE
     Route: 067
  238. CETIRIZINE HYDROCHLORIDE [Suspect]
     Active Substance: CETIRIZINE HYDROCHLORIDE
     Dosage: REACTINE COMPLETE
     Route: 048
  239. CETIRIZINE HYDROCHLORIDE [Suspect]
     Active Substance: CETIRIZINE HYDROCHLORIDE
     Dosage: REACTINE COMPLETE?TABLET (EXTENDED- RELEASE)
     Route: 048
  240. RITUXIMAB [Suspect]
     Active Substance: RITUXIMAB
     Indication: Rheumatoid arthritis
     Route: 042
  241. RITUXIMAB [Suspect]
     Active Substance: RITUXIMAB
     Route: 058
  242. RITUXIMAB [Suspect]
     Active Substance: RITUXIMAB
     Route: 064
  243. RITUXIMAB [Suspect]
     Active Substance: RITUXIMAB
     Route: 041
  244. RITUXIMAB [Suspect]
     Active Substance: RITUXIMAB
     Route: 042
  245. SIMPONI [Suspect]
     Active Substance: GOLIMUMAB
     Indication: Rheumatoid arthritis
     Route: 058
  246. SIMPONI [Suspect]
     Active Substance: GOLIMUMAB
     Route: 058
  247. SIMPONI [Suspect]
     Active Substance: GOLIMUMAB
     Route: 042
  248. SIMPONI [Suspect]
     Active Substance: GOLIMUMAB
     Route: 058
  249. SIMPONI [Suspect]
     Active Substance: GOLIMUMAB
     Route: 058
  250. SIMPONI [Suspect]
     Active Substance: GOLIMUMAB
     Route: 042
  251. SIMPONI [Suspect]
     Active Substance: GOLIMUMAB
     Route: 064
  252. SIMPONI [Suspect]
     Active Substance: GOLIMUMAB
     Route: 064
  253. SOLU-MEDROL [Suspect]
     Active Substance: METHYLPREDNISOLONE SODIUM SUCCINATE
     Indication: Product used for unknown indication
     Dosage: PFIZER ITALIA S.R.L
     Route: 065
  254. SOLU-MEDROL [Suspect]
     Active Substance: METHYLPREDNISOLONE SODIUM SUCCINATE
     Route: 064
  255. STELARA [Suspect]
     Active Substance: USTEKINUMAB
     Indication: Rheumatoid arthritis
     Route: 058
  256. STELARA [Suspect]
     Active Substance: USTEKINUMAB
     Route: 065
  257. STELARA [Suspect]
     Active Substance: USTEKINUMAB
     Route: 065
  258. STELARA [Suspect]
     Active Substance: USTEKINUMAB
     Route: 064
  259. STELARA [Suspect]
     Active Substance: USTEKINUMAB
     Route: 065
  260. SULFASALAZINE [Suspect]
     Active Substance: SULFASALAZINE
     Indication: Rheumatoid arthritis
     Route: 065
  261. SULFASALAZINE [Suspect]
     Active Substance: SULFASALAZINE
     Route: 048
  262. SULFASALAZINE [Suspect]
     Active Substance: SULFASALAZINE
     Route: 058
  263. SULFASALAZINE [Suspect]
     Active Substance: SULFASALAZINE
     Route: 048
  264. SULFASALAZINE [Suspect]
     Active Substance: SULFASALAZINE
     Route: 058
  265. SULFASALAZINE [Suspect]
     Active Substance: SULFASALAZINE
     Route: 048
  266. SULFASALAZINE [Suspect]
     Active Substance: SULFASALAZINE
     Route: 048
  267. SULFASALAZINE [Suspect]
     Active Substance: SULFASALAZINE
     Route: 048
  268. SULFASALAZINE [Suspect]
     Active Substance: SULFASALAZINE
     Route: 048
  269. SULFASALAZINE [Suspect]
     Active Substance: SULFASALAZINE
     Route: 048
  270. SULFASALAZINE [Suspect]
     Active Substance: SULFASALAZINE
     Route: 048
  271. SULFASALAZINE [Suspect]
     Active Substance: SULFASALAZINE
     Route: 058
  272. SULFASALAZINE [Suspect]
     Active Substance: SULFASALAZINE
     Route: 065
  273. SULFASALAZINE [Suspect]
     Active Substance: SULFASALAZINE
     Route: 048
  274. SULFASALAZINE [Suspect]
     Active Substance: SULFASALAZINE
     Route: 048
  275. SULFASALAZINE [Suspect]
     Active Substance: SULFASALAZINE
     Route: 065
  276. SULFASALAZINE [Suspect]
     Active Substance: SULFASALAZINE
     Route: 065
  277. SULFASALAZINE [Suspect]
     Active Substance: SULFASALAZINE
     Route: 048
  278. SULFASALAZINE [Suspect]
     Active Substance: SULFASALAZINE
     Route: 064
  279. SULFASALAZINE [Suspect]
     Active Substance: SULFASALAZINE
     Route: 064
  280. SULFASALAZINE [Suspect]
     Active Substance: SULFASALAZINE
     Route: 065
  281. TOCILIZUMAB [Suspect]
     Active Substance: TOCILIZUMAB
     Indication: Rheumatoid arthritis
     Route: 061
  282. TOCILIZUMAB [Suspect]
     Active Substance: TOCILIZUMAB
     Route: 058
  283. TOCILIZUMAB [Suspect]
     Active Substance: TOCILIZUMAB
     Route: 042
  284. TOCILIZUMAB [Suspect]
     Active Substance: TOCILIZUMAB
     Route: 064
  285. TOCILIZUMAB [Suspect]
     Active Substance: TOCILIZUMAB
     Route: 061
  286. TOCILIZUMAB [Suspect]
     Active Substance: TOCILIZUMAB
     Route: 065
  287. TOCILIZUMAB [Suspect]
     Active Substance: TOCILIZUMAB
     Route: 042
  288. VITAMIN B COMPLEX [Suspect]
     Active Substance: CYANOCOBALAMIN\DEXPANTHENOL\NIACINAMIDE\PYRIDOXINE HYDROCHLORIDE\RIBOFLAVIN 5^-PHOSPHATE SODIUM\THIA
     Indication: Product used for unknown indication
     Route: 065
  289. VITAMIN C [Suspect]
     Active Substance: ASCORBIC ACID
     Indication: Product used for unknown indication
     Route: 048
  290. VITAMIN C [Suspect]
     Active Substance: ASCORBIC ACID
     Route: 048

REACTIONS (165)
  - Adjustment disorder with depressed mood [Fatal]
  - Anti-cyclic citrullinated peptide antibody [Fatal]
  - Anti-cyclic citrullinated peptide antibody positive [Fatal]
  - Arthralgia [Fatal]
  - Arthropathy [Fatal]
  - Autoimmune disorder [Fatal]
  - Blister [Fatal]
  - Blood cholesterol increased [Fatal]
  - Bone erosion [Fatal]
  - Chest pain [Fatal]
  - Bursitis [Fatal]
  - C-reactive protein abnormal [Fatal]
  - Contusion [Fatal]
  - Breast cancer stage II [Fatal]
  - Deep vein thrombosis postoperative [Fatal]
  - Delirium [Fatal]
  - Discomfort [Fatal]
  - Dislocation of vertebra [Fatal]
  - Ear pain [Fatal]
  - Exostosis [Fatal]
  - Facet joint syndrome [Fatal]
  - Fibromyalgia [Fatal]
  - Foot deformity [Fatal]
  - Gait disturbance [Fatal]
  - Gastrointestinal disorder [Fatal]
  - Hypoaesthesia [Fatal]
  - Hepatic cirrhosis [Fatal]
  - Glossodynia [Fatal]
  - Hip arthroplasty [Fatal]
  - Hand deformity [Fatal]
  - Infusion related reaction [Fatal]
  - Ill-defined disorder [Fatal]
  - Hypercholesterolaemia [Fatal]
  - Injury [Fatal]
  - Inflammation [Fatal]
  - Irritable bowel syndrome [Fatal]
  - General physical health deterioration [Fatal]
  - Grip strength decreased [Fatal]
  - Joint dislocation [Fatal]
  - Impaired healing [Fatal]
  - Lower limb fracture [Fatal]
  - Liver disorder [Fatal]
  - Muscle injury [Fatal]
  - Joint range of motion decreased [Fatal]
  - Muscle spasms [Fatal]
  - Joint stiffness [Fatal]
  - Osteoarthritis [Fatal]
  - Lupus-like syndrome [Fatal]
  - Muscular weakness [Fatal]
  - Pain in extremity [Fatal]
  - Pericarditis [Fatal]
  - Osteoporosis [Fatal]
  - Seronegative arthritis [Fatal]
  - Psoriatic arthropathy [Fatal]
  - Musculoskeletal stiffness [Fatal]
  - Musculoskeletal pain [Fatal]
  - Knee arthroplasty [Fatal]
  - Pain [Fatal]
  - Mobility decreased [Fatal]
  - Rheumatoid arthritis [Fatal]
  - Sleep disorder due to general medical condition, insomnia type [Fatal]
  - Synovitis [Fatal]
  - Rheumatic fever [Fatal]
  - Swollen joint count increased [Fatal]
  - Systemic lupus erythematosus [Fatal]
  - Sleep disorder [Fatal]
  - Swelling [Fatal]
  - Wound [Fatal]
  - Road traffic accident [Fatal]
  - Visual impairment [Fatal]
  - Pulmonary fibrosis [Fatal]
  - Abdominal pain [Fatal]
  - Abdominal pain upper [Fatal]
  - Asthenia [Fatal]
  - Asthma [Fatal]
  - Decreased appetite [Fatal]
  - Depression [Fatal]
  - Diarrhoea [Fatal]
  - Dry mouth [Fatal]
  - Dyspnoea [Fatal]
  - Ear infection [Fatal]
  - Fatigue [Fatal]
  - Headache [Fatal]
  - Hypertension [Fatal]
  - Infection [Fatal]
  - Insomnia [Fatal]
  - Laryngitis [Fatal]
  - Lip dry [Fatal]
  - Lower respiratory tract infection [Fatal]
  - Lupus vulgaris [Fatal]
  - Nasopharyngitis [Fatal]
  - Obesity [Fatal]
  - Paraesthesia [Fatal]
  - Oedema [Fatal]
  - Oedema peripheral [Fatal]
  - Pruritus [Fatal]
  - Type 2 diabetes mellitus [Fatal]
  - Stomatitis [Fatal]
  - Weight increased [Fatal]
  - Rash [Fatal]
  - Duodenal ulcer perforation [Fatal]
  - Drug hypersensitivity [Fatal]
  - Abdominal discomfort [Fatal]
  - Alopecia [Fatal]
  - Amnesia [Fatal]
  - Anxiety [Fatal]
  - Arthritis [Fatal]
  - Arthropathy [Fatal]
  - Bronchitis [Fatal]
  - C-reactive protein [Fatal]
  - C-reactive protein increased [Fatal]
  - Confusional state [Fatal]
  - Crohn^s disease [Fatal]
  - Dizziness [Fatal]
  - Dyspepsia [Fatal]
  - Folliculitis [Fatal]
  - Gait inability [Fatal]
  - Helicobacter infection [Fatal]
  - Hepatic enzyme increased [Fatal]
  - Hypersensitivity [Fatal]
  - Liver function test increased [Fatal]
  - Liver injury [Fatal]
  - Lung disorder [Fatal]
  - Malaise [Fatal]
  - Memory impairment [Fatal]
  - Migraine [Fatal]
  - Muscle spasticity [Fatal]
  - Nausea [Fatal]
  - Night sweats [Fatal]
  - Pemphigus [Fatal]
  - Peripheral swelling [Fatal]
  - Peripheral venous disease [Fatal]
  - Pneumonia [Fatal]
  - Psoriasis [Fatal]
  - Pyrexia [Fatal]
  - Red blood cell sedimentation rate increased [Fatal]
  - Respiratory disorder [Fatal]
  - Retinitis [Fatal]
  - Rheumatoid factor positive [Fatal]
  - Sciatica [Fatal]
  - Sinusitis [Fatal]
  - Spinal fusion surgery [Fatal]
  - Spondylitis [Fatal]
  - Tachycardia [Fatal]
  - Upper respiratory tract infection [Fatal]
  - Urticaria [Fatal]
  - Vomiting [Fatal]
  - Walking aid user [Fatal]
  - Weight decreased [Fatal]
  - Wheezing [Fatal]
  - Wound infection [Fatal]
  - X-ray abnormal [Fatal]
  - Joint swelling [Fatal]
  - Therapeutic response decreased [Fatal]
  - Therapeutic product effect decreased [Fatal]
  - Therapy non-responder [Fatal]
  - Prescribed underdose [Fatal]
  - Contraindicated product administered [Fatal]
  - Maternal exposure during pregnancy [Fatal]
  - Medication error [Fatal]
  - Maternal exposure during pregnancy [Fatal]
  - Off label use [Fatal]
  - Prescribed overdose [Fatal]
  - Intentional product use issue [Fatal]
  - Underdose [Fatal]
